FAERS Safety Report 23719401 (Version 1)
Quarter: 2024Q2

REPORT INFORMATION
  Report Type: Spontaneous
  Country: FR (occurrence: FR)
  Receive Date: 20240408
  Receipt Date: 20240408
  Transmission Date: 20240716
  Serious: Yes (Hospitalization, Other)
  Sender: FDA-Public Use
  Company Number: None

PATIENT
  Age: 57 Year
  Sex: Male
  Weight: 70 kg

DRUGS (3)
  1. SARCLISA [Suspect]
     Active Substance: ISATUXIMAB\ISATUXIMAB-IRFC
     Indication: Plasma cell myeloma
     Dosage: 700 MG / 4 TIMES PER CYCLE
     Route: 042
     Dates: start: 20240110, end: 20240208
  2. KYPROLIS [Suspect]
     Active Substance: CARFILZOMIB
     Indication: Plasma cell myeloma
     Dosage: 20 MG/M2
     Route: 042
     Dates: start: 20240110
  3. KYPROLIS [Suspect]
     Active Substance: CARFILZOMIB
     Dosage: 58 MG/M2 ON D8 D15
     Route: 042
     Dates: end: 20240208

REACTIONS (1)
  - Thrombotic microangiopathy [Recovering/Resolving]

NARRATIVE: CASE EVENT DATE: 20240213
